FAERS Safety Report 4941263-3 (Version None)
Quarter: 2006Q1

REPORT INFORMATION
  Report Type: 
  Country: None (occurrence: None)
  Receive Date: 20060308
  Receipt Date: 20060224
  Transmission Date: 20060701
  Serious: Yes (Death)
  Sender: FDA-Public Use
  Company Number: 2006011562

PATIENT
  Age: 74 Year
  Sex: Male
  Weight: 78.4723 kg

DRUGS (10)
  1. LIPITOR [Suspect]
     Indication: HYPERLIPIDAEMIA
     Dosage: 60 MG (60 MG, DAILY), ORAL
     Route: 048
  2. SPIRONOLACTONE [Concomitant]
  3. FERROUS GLUCONATE (FERROUS GLUCONATE) [Concomitant]
  4. ACETYLSALICYLIC ACID ENTERIC COATED (ACETYLSALICYLIC ACID) [Concomitant]
  5. DIGOXIN [Concomitant]
  6. COREG [Concomitant]
  7. COUMADIN [Concomitant]
  8. FUROSEMIDE [Concomitant]
  9. RAMIPRIL [Concomitant]
  10. HUMULIN 30/70 (INSULIN HUMAN INJECTION, ISOPHANE) [Concomitant]

REACTIONS (4)
  - CARDIAC ARREST [None]
  - COGNITIVE DISORDER [None]
  - DIFFICULTY IN WALKING [None]
  - HYPOKINESIA [None]
